FAERS Safety Report 22640846 (Version 1)
Quarter: 2023Q2

REPORT INFORMATION
  Report Type: Spontaneous
  Country: US (occurrence: US)
  Receive Date: 20230626
  Receipt Date: 20230626
  Transmission Date: 20230721
  Serious: No
  Sender: FDA-Public Use
  Company Number: US-BEH-2023160132

PATIENT
  Sex: Female

DRUGS (2)
  1. HUMATE-P [Suspect]
     Active Substance: HUMAN COAGULATION FACTOR VIII/VON WILLEBRAND FACTOR COMPLEX
     Indication: Von Willebrand^s disease
     Dosage: 3700 INTERNATIONAL UNIT, PRN
     Route: 042
     Dates: start: 202304
  2. AMICAR [Suspect]
     Active Substance: AMINOCAPROIC ACID
     Route: 065

REACTIONS (3)
  - Urticaria [Unknown]
  - Rash macular [Unknown]
  - Pruritus [Unknown]
